FAERS Safety Report 11350267 (Version 1)
Quarter: 2015Q3

REPORT INFORMATION
  Report Type: Spontaneous
  Country: US (occurrence: None)
  Receive Date: 20150805
  Receipt Date: 20150805
  Transmission Date: 20151125
  Serious: Yes (Other)
  Sender: FDA-Public Use
  Company Number: None

PATIENT
  Age: 58 Year
  Sex: Female
  Weight: 117.94 kg

DRUGS (1)
  1. VYVANSE [Suspect]
     Active Substance: LISDEXAMFETAMINE DIMESYLATE
     Indication: BULIMIA NERVOSA
     Dosage: ONE PILL
     Route: 048

REACTIONS (4)
  - Peripheral swelling [None]
  - Arthralgia [None]
  - Muscle spasms [None]
  - Joint swelling [None]

NARRATIVE: CASE EVENT DATE: 20150703
